FAERS Safety Report 6914504-0 (Version None)
Quarter: 2010Q3

REPORT INFORMATION
  Report Type: 
  Country: None (occurrence: None)
  Receive Date: 20100809
  Receipt Date: 20100804
  Transmission Date: 20110219
  Serious: Yes (Other)
  Sender: FDA-Public Use
  Company Number: BR-B.I. PHARMACEUTICALS,INC./RIDGEFIELD-2010-BR-01753BR

PATIENT
  Sex: Male

DRUGS (4)
  1. ATROVENT [Suspect]
     Indication: CHRONIC OBSTRUCTIVE PULMONARY DISEASE
     Dosage: NR
     Route: 055
     Dates: start: 20000101
  2. FLUIR [Concomitant]
     Dosage: NR
  3. AMINOPHYLLINE [Concomitant]
     Dosage: NR
  4. INSULIN [Concomitant]
     Dosage: NR

REACTIONS (2)
  - BLADDER NEOPLASM [None]
  - DYSGEUSIA [None]
